FAERS Safety Report 23059263 (Version 1)
Quarter: 2023Q4

REPORT INFORMATION
  Report Type: Report from Study
  Country: GB (occurrence: None)
  Receive Date: 20231012
  Receipt Date: 20231012
  Transmission Date: 20240110
  Serious: Yes (Hospitalization, Other)
  Sender: FDA-Public Use
  Company Number: 2023A226337

PATIENT
  Sex: Female

DRUGS (1)
  1. FASENRA [Suspect]
     Active Substance: BENRALIZUMAB
     Indication: Asthma
     Route: 058
     Dates: start: 202004

REACTIONS (6)
  - Pain in extremity [Unknown]
  - Erythema [Unknown]
  - Thrombosis [Recovered/Resolved]
  - Cerebrovascular accident [Unknown]
  - Mobility decreased [Unknown]
  - Dyspnoea [Recovering/Resolving]
